FAERS Safety Report 18370512 (Version 2)
Quarter: 2021Q1

REPORT INFORMATION
  Report Type: Spontaneous
  Country: GB (occurrence: GB)
  Receive Date: 20201012
  Receipt Date: 20210129
  Transmission Date: 20210419
  Serious: No
  Sender: FDA-Public Use
  Company Number: NVSC2020GB266622

PATIENT
  Age: 56 Year
  Sex: Female

DRUGS (3)
  1. ESTRADOT [Suspect]
     Active Substance: ESTRADIOL
     Indication: MENOPAUSE
     Dosage: 50 UG/24 HOURS (TWICE A WEEK)
     Route: 062
  2. ESTRADOT [Suspect]
     Active Substance: ESTRADIOL
     Dosage: 75 UG
     Route: 062
  3. OESTROGEN [Concomitant]
     Indication: PRODUCT USED FOR UNKNOWN INDICATION
     Dosage: UNK
     Route: 065

REACTIONS (8)
  - Blood oestrogen decreased [Unknown]
  - Insomnia [Unknown]
  - Hyperhidrosis [Unknown]
  - Feeling abnormal [Unknown]
  - Memory impairment [Unknown]
  - Feeling hot [Unknown]
  - Wrong technique in product usage process [Unknown]
  - Menopausal symptoms [Unknown]
